FAERS Safety Report 8022703-2 (Version None)
Quarter: 2012Q1

REPORT INFORMATION
  Report Type: 
  Country: None (occurrence: None)
  Receive Date: 20120104
  Receipt Date: 20120103
  Transmission Date: 20120608
  Serious: Yes (Other)
  Sender: FDA-Public Use
  Company Number: US-ROCHE-1026973

PATIENT

DRUGS (2)
  1. BONIVA [Suspect]
     Indication: OSTEOPOROSIS
     Dates: end: 20091201
  2. FOSAMAX [Suspect]
     Indication: OSTEOPOROSIS
     Dates: end: 20090301

REACTIONS (2)
  - FEMUR FRACTURE [None]
  - EMOTIONAL DISTRESS [None]
